FAERS Safety Report 23568658 (Version 1)
Quarter: 2024Q1

REPORT INFORMATION
  Report Type: Spontaneous
  Country: US (occurrence: US)
  Receive Date: 20240227
  Receipt Date: 20240227
  Transmission Date: 20240409
  Serious: Yes (Other)
  Sender: FDA-Public Use
  Company Number: US-NOVITIUMPHARMA-2024USNVP00177

PATIENT
  Age: 15 Year
  Sex: Male

DRUGS (5)
  1. DAPSONE [Suspect]
     Active Substance: DAPSONE
     Indication: Hypersensitivity
  2. DEXAMETHASONE [Suspect]
     Active Substance: DEXAMETHASONE
     Indication: Hypersensitivity
     Route: 048
  3. CYCLOSPORINE [Concomitant]
     Active Substance: CYCLOSPORINE
     Indication: Hypersensitivity
  4. Immune-globulin [Concomitant]
     Indication: Hypersensitivity
     Route: 042
  5. DUPILUMAB [Concomitant]
     Active Substance: DUPILUMAB
     Indication: Hypersensitivity

REACTIONS (4)
  - Meningitis aseptic [Unknown]
  - Malaise [Unknown]
  - Vomiting [Unknown]
  - Condition aggravated [Unknown]
